FAERS Safety Report 5488853-X (Version None)
Quarter: 2007Q4

REPORT INFORMATION
  Report Type: 
  Country: None (occurrence: None)
  Receive Date: 20071017
  Receipt Date: 20071005
  Transmission Date: 20080405
  Serious: Yes (Other)
  Sender: FDA-Public Use
  Company Number: US-PFIZER INC-2007083871

PATIENT
  Sex: Female
  Weight: 79.545 kg

DRUGS (21)
  1. LYRICA [Interacting]
     Indication: FIBROMYALGIA
     Dates: start: 20070101, end: 20070101
  2. TIKOSYN [Interacting]
     Indication: SUPRAVENTRICULAR TACHYCARDIA
     Route: 048
  3. NEURONTIN [Suspect]
     Indication: FIBROMYALGIA
     Route: 048
  4. MOMETASONE FUROATE [Concomitant]
     Route: 055
  5. MARVELON [Concomitant]
  6. NEXIUM [Concomitant]
     Indication: GASTROOESOPHAGEAL REFLUX DISEASE
  7. NEXIUM [Concomitant]
     Indication: BARRETT'S OESOPHAGUS
  8. PERI-COLACE [Concomitant]
  9. TRAZODONE HCL [Concomitant]
     Dosage: DAILY DOSE:50MG
  10. MONTELUKAST SODIUM [Concomitant]
  11. RHINOCORT [Concomitant]
  12. ALL OTHER THERAPEUTIC PRODUCTS [Concomitant]
     Dosage: DAILY DOSE:8MG
  13. TRICOR [Concomitant]
     Dosage: DAILY DOSE:48MG
  14. LEXAPRO [Concomitant]
  15. LOTRISONE [Concomitant]
  16. SKELAXIN [Concomitant]
  17. TYLENOL (CAPLET) [Concomitant]
  18. ULTRAM [Concomitant]
  19. VICODIN [Concomitant]
     Dosage: TEXT:5/500MG THREE TIMES DAILY AS NEEDED
  20. MYLANTA [Concomitant]
  21. MUCINEX [Concomitant]

REACTIONS (4)
  - DRUG INTERACTION [None]
  - EXTRASYSTOLES [None]
  - PAIN [None]
  - SUPRAVENTRICULAR TACHYCARDIA [None]
